FAERS Safety Report 13089074 (Version 1)
Quarter: 2017Q1

REPORT INFORMATION
  Report Type: Spontaneous
  Country: US (occurrence: US)
  Receive Date: 20170105
  Receipt Date: 20170105
  Transmission Date: 20170428
  Serious: No
  Sender: FDA-Public Use
  Company Number: US-PERRIGO-16US019384

PATIENT
  Age: 53 Year
  Sex: Female
  Weight: 51.7 kg

DRUGS (4)
  1. GUAIFENESIN. [Suspect]
     Active Substance: GUAIFENESIN
     Indication: PAIN
  2. HYDROCODONE [Concomitant]
     Active Substance: HYDROCODONE
     Indication: PAIN
     Dosage: UNK
     Route: 048
  3. GUAIFENESIN. [Suspect]
     Active Substance: GUAIFENESIN
     Indication: FIBROMYALGIA
     Dosage: 600 MG, TID
     Route: 048
     Dates: start: 201509
  4. AMBIEN [Concomitant]
     Active Substance: ZOLPIDEM TARTRATE
     Indication: SLEEP APNOEA SYNDROME
     Dosage: UNK
     Route: 048

REACTIONS (4)
  - Condition aggravated [Recovered/Resolved]
  - Off label use [Unknown]
  - Incorrect drug administration duration [Unknown]
  - Therapeutic response unexpected [Unknown]

NARRATIVE: CASE EVENT DATE: 201509
